FAERS Safety Report 8509491-8 (Version None)
Quarter: 2012Q3

REPORT INFORMATION
  Report Type: 
  Country: None (occurrence: None)
  Receive Date: 20120713
  Receipt Date: 20120710
  Transmission Date: 20120928
  Serious: Yes (Death, Life-Threatening, Hospitalization)
  Sender: FDA-Public Use
  Company Number: AT-JNJFOC-20120700940

PATIENT
  Age: 20 Year
  Sex: Male

DRUGS (1)
  1. TOPAMAX [Suspect]
     Indication: ABNORMAL BEHAVIOUR
     Route: 048
     Dates: end: 20120701

REACTIONS (5)
  - COMA [None]
  - OFF LABEL USE [None]
  - MULTI-ORGAN FAILURE [None]
  - STATUS EPILEPTICUS [None]
  - HYPERTHERMIA [None]
